FAERS Safety Report 12368034 (Version 2)
Quarter: 2016Q2

REPORT INFORMATION
  Report Type: Report from Study
  Country: DE (occurrence: DE)
  Receive Date: 20160513
  Receipt Date: 20160526
  Transmission Date: 20160815
  Serious: Yes (Hospitalization)
  Sender: FDA-Public Use
  Company Number: DE-BIOGEN-2016BI00235641

PATIENT
  Age: 33 Year
  Sex: Female

DRUGS (1)
  1. PLEGRIDY [Suspect]
     Active Substance: PEGINTERFERON BETA-1A
     Indication: MULTIPLE SCLEROSIS
     Route: 058
     Dates: start: 20150107, end: 20160408

REACTIONS (5)
  - Pyrexia [Unknown]
  - Chills [Unknown]
  - Asthenia [Unknown]
  - Multiple sclerosis [Recovered/Resolved]
  - Myalgia [Unknown]

NARRATIVE: CASE EVENT DATE: 201512
